FAERS Safety Report 20182527 (Version 1)
Quarter: 2021Q4

REPORT INFORMATION
  Report Type: Spontaneous
  Country: US (occurrence: None)
  Receive Date: 20211214
  Receipt Date: 20211214
  Transmission Date: 20220303
  Serious: Yes (Other)
  Sender: FDA-Public Use
  Company Number: None

PATIENT
  Age: 66 Year
  Sex: Female
  Weight: 69.4 kg

DRUGS (1)
  1. IRINOTECAN [Suspect]
     Active Substance: IRINOTECAN
     Indication: Pancreatic carcinoma
     Dosage: OTHER FREQUENCY : EVERY 2 WEEKS;?
     Route: 041
     Dates: start: 20211129

REACTIONS (3)
  - Infusion related reaction [None]
  - Swollen tongue [None]
  - Hypoaesthesia [None]

NARRATIVE: CASE EVENT DATE: 20211213
